FAERS Safety Report 8041472-3 (Version None)
Quarter: 2012Q1

REPORT INFORMATION
  Report Type: 
  Country: None (occurrence: None)
  Receive Date: 20120112
  Receipt Date: 20120106
  Transmission Date: 20120608
  Serious: Yes (Other)
  Sender: FDA-Public Use
  Company Number: DE-PFIZER INC-2012004155

PATIENT
  Age: 75 Year
  Sex: Male

DRUGS (1)
  1. LYRICA [Suspect]

REACTIONS (5)
  - OBSESSIVE-COMPULSIVE DISORDER [None]
  - PERSECUTORY DELUSION [None]
  - APATHY [None]
  - ANOSOGNOSIA [None]
  - ASTHENIA [None]
